FAERS Safety Report 4713130-1 (Version None)
Quarter: 2005Q3

REPORT INFORMATION
  Report Type: 
  Country: None (occurrence: None)
  Receive Date: 20050712
  Receipt Date: 20050712
  Transmission Date: 20060218
  Serious: Yes (Life-Threatening, Hospitalization)
  Sender: FDA-Public Use
  Company Number: None

PATIENT
  Age: 57 Year
  Sex: Male
  Weight: 75.3 kg

DRUGS (6)
  1. LISINOPRIL [Suspect]
     Indication: HYPERTENSION
     Dosage: 10MG, 10MG DAI, ORAL
     Route: 048
     Dates: start: 20050504, end: 20050516
  2. DILTIAZEM [Concomitant]
  3. HYDROCHLOROTHIAZIDE [Concomitant]
  4. DOXAZOSIN MESYLATE [Concomitant]
  5. BETAMETHASONE DIPROPIONATE [Concomitant]
  6. . [Concomitant]

REACTIONS (1)
  - ANGIONEUROTIC OEDEMA [None]
